FAERS Safety Report 5509552-1 (Version None)
Quarter: 2007Q4

REPORT INFORMATION
  Report Type: 
  Country: None (occurrence: None)
  Receive Date: 20071031
  Receipt Date: 20070828
  Transmission Date: 20080405
  Serious: No
  Sender: FDA-Public Use
  Company Number: 2007PV033369

PATIENT
  Age: 78 Year
  Sex: Female
  Weight: 77.1115 kg

DRUGS (5)
  1. SYMLIN [Suspect]
     Dosage: 60 MCG; TID; SC; SC; 12 MCG; TID; SC
     Route: 058
     Dates: start: 20060101, end: 20060101
  2. SYMLIN [Suspect]
     Dosage: 60 MCG; TID; SC; SC; 12 MCG; TID; SC
     Route: 058
     Dates: start: 20060101, end: 20060101
  3. SYMLIN [Suspect]
     Dosage: 60 MCG; TID; SC; SC; 12 MCG; TID; SC
     Route: 058
     Dates: start: 20060101
  4. APIDRA [Concomitant]
  5. LANTUS [Concomitant]

REACTIONS (1)
  - ALOPECIA [None]
